FAERS Safety Report 15713057 (Version 5)
Quarter: 2020Q2

REPORT INFORMATION
  Report Type: Report from Study
  Country: CN (occurrence: CN)
  Receive Date: 20181212
  Receipt Date: 20200406
  Transmission Date: 20200713
  Serious: Yes (Hospitalization)
  Sender: FDA-Public Use
  Company Number: CN-ROCHE-2227603

PATIENT
  Age: 46 Year
  Sex: Female
  Weight: 50 kg

DRUGS (21)
  1. DEXAMETHASONE SODIUM PHOSPHATE. [Concomitant]
     Active Substance: DEXAMETHASONE SODIUM PHOSPHATE
     Route: 042
     Dates: start: 20181206, end: 20181206
  2. AZASETRON HYDROCHLORIDE [Concomitant]
     Active Substance: AZASETRON HYDROCHLORIDE
     Route: 065
     Dates: start: 20181206, end: 20181206
  3. GLUTATHIONE REDUCED [Concomitant]
     Route: 065
     Dates: start: 20181206, end: 20181206
  4. GLUTATHIONE REDUCED [Concomitant]
     Route: 065
     Dates: start: 20181207, end: 20181210
  5. HIRUDOID [Concomitant]
     Active Substance: GLYCOSAMINOGLYCANS
     Route: 065
     Dates: start: 20181206, end: 20181208
  6. CARBOPLATIN. [Suspect]
     Active Substance: CARBOPLATIN
     Indication: OVARIAN CANCER
     Dosage: TO ACHIEVE A TARGET AREA UNDER THE CURVE (AUC) OF 6 MILLIGRAMS PER MILLILITER*MINUTE (MG/ML*MIN)?THI
     Route: 042
     Dates: start: 20181206
  7. DEXAMETHASONE SODIUM PHOSPHATE. [Concomitant]
     Active Substance: DEXAMETHASONE SODIUM PHOSPHATE
     Route: 042
     Dates: start: 20181205, end: 20181205
  8. LANSOPRAZOLE. [Concomitant]
     Active Substance: LANSOPRAZOLE
     Route: 065
     Dates: start: 20181206, end: 20181206
  9. AMIFOSTINE. [Concomitant]
     Active Substance: AMIFOSTINE
     Route: 065
     Dates: start: 20181206, end: 20181206
  10. ATEZOLIZUMAB. [Suspect]
     Active Substance: ATEZOLIZUMAB
     Indication: OVARIAN CANCER
     Dosage: THIS WAS ALSO THE MOST RECENT DOSE OF ATEZOLIZUAMB PRIOR TO LIVER DAMAGE ONSET
     Route: 042
     Dates: start: 20181206
  11. DEXAMETHASONE ACETATE [Concomitant]
     Active Substance: DEXAMETHASONE ACETATE
     Route: 048
     Dates: start: 20181204, end: 20181204
  12. LIDOCAINE HYDROCHLORIDE. [Concomitant]
     Active Substance: LIDOCAINE HYDROCHLORIDE
     Route: 065
     Dates: start: 20181206, end: 20181206
  13. PACLITAXEL. [Suspect]
     Active Substance: PACLITAXEL
     Indication: OVARIAN CANCER
     Dosage: THIS WAS ALSO THE MOST RECENT DOSE OF PACLITAXEL (255 MG) PRIOR TO LIVER DAMAGE ONSET
     Route: 042
     Dates: start: 20181206
  14. SODIUM CHLORIDE. [Concomitant]
     Active Substance: SODIUM CHLORIDE
     Route: 065
     Dates: start: 20181206, end: 20181206
  15. INVERT SUGAR [Concomitant]
     Active Substance: INVERT SUGAR
     Route: 065
     Dates: start: 20181206, end: 20181206
  16. BEVACIZUMAB. [Suspect]
     Active Substance: BEVACIZUMAB
     Indication: OVARIAN CANCER
     Dosage: IN 2018, MOST RECENT DOSE OF BEVACIZUMAB PRIOR TO SAE ONSET
     Route: 042
  17. POTASSIUM CHLORIDE. [Concomitant]
     Active Substance: POTASSIUM CHLORIDE
     Dosage: SUSTAINED RELEASED
     Route: 065
     Dates: start: 20181207, end: 20181210
  18. POVIDONE-IODINE. [Concomitant]
     Active Substance: POVIDONE-IODINE
     Route: 065
     Dates: start: 20181206, end: 20181206
  19. CALCIUM GLUCONATE. [Concomitant]
     Active Substance: CALCIUM GLUCONATE
     Route: 065
     Dates: start: 20181207, end: 20181207
  20. MAGNESIUM SULFATE. [Concomitant]
     Active Substance: MAGNESIUM SULFATE
     Route: 065
     Dates: start: 20181205, end: 20181208
  21. FERROUS SUCCINATE [Concomitant]
     Active Substance: FERROUS SUCCINATE
     Indication: ANAEMIA
     Route: 065
     Dates: start: 20181207, end: 20190123

REACTIONS (1)
  - Liver injury [Recovered/Resolved]

NARRATIVE: CASE EVENT DATE: 20181207
